FAERS Safety Report 23326521 (Version 1)
Quarter: 2023Q4

REPORT INFORMATION
  Report Type: Spontaneous
  Country: US (occurrence: US)
  Receive Date: 20231221
  Receipt Date: 20231221
  Transmission Date: 20240109
  Serious: No
  Sender: FDA-Public Use
  Company Number: US-BEH-2023166584

PATIENT
  Sex: Female

DRUGS (8)
  1. HIZENTRA [Suspect]
     Active Substance: HUMAN IMMUNOGLOBULIN G
     Indication: Hypogammaglobulinaemia
     Dosage: 14 GRAM, QOW
     Route: 058
     Dates: start: 20220927
  2. ATROPINE [Concomitant]
     Active Substance: ATROPINE\ATROPINE SULFATE
  3. DICYCLOMINE [Concomitant]
     Active Substance: DICYCLOMINE HYDROCHLORIDE
  4. FLUCONAZOLE [Concomitant]
     Active Substance: FLUCONAZOLE
  5. GAMMAGARD [Concomitant]
     Active Substance: HUMAN IMMUNOGLOBULIN G
  6. LIDO/PRILOCAINE [Concomitant]
  7. OZEMPIC [Concomitant]
     Active Substance: SEMAGLUTIDE
  8. SOLU-MEDROL [Concomitant]
     Active Substance: METHYLPREDNISOLONE SODIUM SUCCINATE

REACTIONS (3)
  - Malaise [Not Recovered/Not Resolved]
  - No adverse event [Not Recovered/Not Resolved]
  - Treatment delayed [Not Recovered/Not Resolved]
